FAERS Safety Report 10033802 (Version 3)
Quarter: 2014Q2

REPORT INFORMATION
  Report Type: Spontaneous
  Country: US (occurrence: US)
  Receive Date: 20140325
  Receipt Date: 20140613
  Transmission Date: 20141212
  Serious: Yes (Other)
  Sender: FDA-Public Use
  Company Number: US-BIOGENIDEC-2014BI025218

PATIENT
  Age: 32 Year
  Sex: Female

DRUGS (5)
  1. TECFIDERA [Suspect]
     Indication: RELAPSING-REMITTING MULTIPLE SCLEROSIS
     Route: 048
     Dates: start: 20130513, end: 20130520
  2. TECFIDERA [Suspect]
     Indication: RELAPSING-REMITTING MULTIPLE SCLEROSIS
     Route: 048
     Dates: start: 20130521, end: 20140316
  3. VITAMIN D3 [Concomitant]
     Route: 048
  4. OMEGA-3 FISH OIL [Concomitant]
     Route: 048
  5. ADDERALL [Concomitant]
     Route: 048

REACTIONS (9)
  - Plastic surgery to the face [Recovered/Resolved]
  - Influenza [Unknown]
  - Nasopharyngitis [Unknown]
  - Paraesthesia [Unknown]
  - Herpes zoster [Recovered/Resolved]
  - Infection [Unknown]
  - Decreased immune responsiveness [Not Recovered/Not Resolved]
  - Flushing [Recovered/Resolved]
  - Nerve injury [Not Recovered/Not Resolved]
